FAERS Safety Report 15010522 (Version 1)
Quarter: 2018Q2

REPORT INFORMATION
  Report Type: Spontaneous
  Country: US (occurrence: US)
  Receive Date: 20180614
  Receipt Date: 20180614
  Transmission Date: 20180711
  Serious: No
  Sender: FDA-Public Use
  Company Number: US-ADAAP-201800100

PATIENT
  Age: 36 Year
  Sex: Female
  Weight: 83.6 kg

DRUGS (1)
  1. ` (COATED) [Suspect]
     Active Substance: NIACIN
     Indication: POSITRON EMISSION TOMOGRAM
     Route: 042
     Dates: start: 20171213, end: 20171213

REACTIONS (2)
  - Rash [Recovered/Resolved]
  - Pruritus [Recovered/Resolved]

NARRATIVE: CASE EVENT DATE: 20171213
